FAERS Safety Report 19887071 (Version 2)
Quarter: 2021Q4

REPORT INFORMATION
  Report Type: Other
  Country: PT (occurrence: None)
  Receive Date: 20210928
  Receipt Date: 20211106
  Transmission Date: 20220303
  Serious: Yes (Other)
  Sender: FDA-Public Use
  Company Number: PT-ROCHE-2917256

PATIENT
  Age: 59 Year
  Sex: Female

DRUGS (2)
  1. OCRELIZUMAB [Suspect]
     Active Substance: OCRELIZUMAB
     Indication: Primary progressive multiple sclerosis
     Dosage: (SPLIT INTO TWO 300 MG IV INFUSIONS TWO WEEKS APART)
     Route: 042
     Dates: start: 201807
  2. OCRELIZUMAB [Suspect]
     Active Substance: OCRELIZUMAB
     Dosage: SINGLE 600 MG IV INFUSION
     Route: 042

REACTIONS (1)
  - Basedow^s disease [Unknown]
